FAERS Safety Report 9638766 (Version 1)
Quarter: 2013Q4

REPORT INFORMATION
  Report Type: Spontaneous
  Country: US (occurrence: US)
  Receive Date: 20131022
  Receipt Date: 20131022
  Transmission Date: 20140711
  Serious: Yes (Other)
  Sender: FDA-Public Use
  Company Number: US-BRISTOL-MYERS SQUIBB COMPANY-19202324

PATIENT
  Age: 83 Year
  Sex: Female
  Weight: 78.91 kg

DRUGS (2)
  1. ELIQUIS [Suspect]
     Indication: CEREBROVASCULAR ACCIDENT
  2. ASPIRIN [Concomitant]

REACTIONS (2)
  - Urticaria [Recovered/Resolved]
  - Rectal haemorrhage [Recovered/Resolved]
